FAERS Safety Report 12631498 (Version 2)
Quarter: 2016Q3

REPORT INFORMATION
  Report Type: Spontaneous
  Country: US (occurrence: US)
  Receive Date: 20160808
  Receipt Date: 20160808
  Transmission Date: 20161109
  Serious: No
  Sender: FDA-Public Use
  Company Number: US-BEH-2015054346

PATIENT
  Sex: Female
  Weight: 92 kg

DRUGS (18)
  1. MULTIVITAMIN [Concomitant]
     Active Substance: VITAMINS
  2. CIPRO [Concomitant]
     Active Substance: CIPROFLOXACIN HYDROCHLORIDE
  3. ITRACONAZOLE. [Concomitant]
     Active Substance: ITRACONAZOLE
  4. IMITREX [Concomitant]
     Active Substance: SUMATRIPTAN SUCCINATE
  5. TRIAMTERENE. [Concomitant]
     Active Substance: TRIAMTERENE
  6. EPIPEN [Concomitant]
     Active Substance: EPINEPHRINE
     Indication: ANAPHYLACTIC REACTION
  7. ATENOLOL. [Concomitant]
     Active Substance: ATENOLOL
  8. VITAMIN D [Concomitant]
     Active Substance: CHOLECALCIFEROL
  9. PROAIR HFA [Concomitant]
     Active Substance: ALBUTEROL SULFATE
  10. ESTRACE [Concomitant]
     Active Substance: ESTRADIOL
  11. SINGULAIR [Concomitant]
     Active Substance: MONTELUKAST SODIUM
  12. LORAZEPAM. [Concomitant]
     Active Substance: LORAZEPAM
  13. FLAGYL [Concomitant]
     Active Substance: METRONIDAZOLE\METRONIDAZOLE HYDROCHLORIDE
  14. AMBIEN [Concomitant]
     Active Substance: ZOLPIDEM TARTRATE
  15. ASPIRIN. [Concomitant]
     Active Substance: ASPIRIN
  16. HIZENTRA [Suspect]
     Active Substance: HUMAN IMMUNOGLOBULIN G
     Indication: IMMUNODEFICIENCY COMMON VARIABLE
     Route: 058
  17. RANITIDINE. [Concomitant]
     Active Substance: RANITIDINE
  18. ADVAIR HFA [Concomitant]
     Active Substance: FLUTICASONE PROPIONATE\SALMETEROL XINAFOATE

REACTIONS (1)
  - Palpitations [Unknown]
